FAERS Safety Report 9100672 (Version 1)
Quarter: 2013Q1

REPORT INFORMATION
  Report Type: Report from Study
  Country: CA (occurrence: CA)
  Receive Date: 20130215
  Receipt Date: 20130215
  Transmission Date: 20140127
  Serious: Yes (Hospitalization, Other)
  Sender: FDA-Public Use
  Company Number: CA-JNJFOC-20130204420

PATIENT
  Age: 53 None
  Sex: Female
  Weight: 92.5 kg

DRUGS (22)
  1. ATIVAN [Concomitant]
     Indication: ANXIETY
     Route: 065
  2. BUPROPION SR [Concomitant]
     Dosage: TAKE ONE TABLET ONCE DAILY FOR THE FIRST 7 DAYS THEN 1 TABLET BID AFTERWARDS
     Route: 065
  3. ACETAMINOPHEN [Concomitant]
     Indication: PYREXIA
     Route: 065
  4. ACETAMINOPHEN [Concomitant]
     Indication: PAIN
     Route: 065
  5. SALBUTAMOL WITH IPRATROPIUM [Concomitant]
     Dosage: 2-1 MG/ML
     Route: 065
  6. ALENDRONATE [Concomitant]
     Indication: OSTEOPOROSIS
     Route: 065
  7. FERROUS SULFATE [Concomitant]
     Route: 065
  8. DOMPERIDONE [Concomitant]
     Dosage: ONE TABLET QID WITH MEALS AND HS
     Route: 065
  9. PROMETRIUM [Concomitant]
     Route: 065
  10. SPIRIVA [Concomitant]
     Dosage: INHALE CONTENTS OF ONE CAPSULE ONCE DAILY AT REGULAR TIME
     Route: 048
  11. REMICADE [Suspect]
     Indication: RHEUMATOID ARTHRITIS
     Dosage: 400 (UNITS UNSPECIFIED) ONCE EVERY 4 WEEKS X52 WEEKS
     Route: 042
     Dates: start: 20071120
  12. ASAPHEN [Concomitant]
     Dosage: FOR BLOOD CIRCULATION; DO NOT CHEW
     Route: 065
  13. ATORVASTATIN [Concomitant]
     Route: 065
  14. LEVOFLOXACIN [Concomitant]
     Route: 065
  15. SALBUTAMOL [Concomitant]
     Indication: ASTHMA
     Route: 048
  16. SALBUTAMOL [Concomitant]
     Indication: ASTHMA
     Route: 048
  17. PREDNISONE [Concomitant]
     Dosage: ^6 TABLETS WITH BREAKFAST FOR 5 DAYS THEN REDUCE GRADUALLY TO 1 TABLET PER DAY AFTERWARDS^
     Route: 065
  18. UNKNOWN MEDICATION [Concomitant]
     Route: 065
  19. CALCIUM [Concomitant]
     Route: 065
  20. APO-IBUPROFEN [Concomitant]
     Dosage: WITH FOOD
     Route: 065
  21. PMS-HYDROMORPHONE [Concomitant]
     Indication: PAIN
     Route: 065
  22. NEXIUM [Concomitant]
     Route: 065

REACTIONS (4)
  - Chronic obstructive pulmonary disease [Not Recovered/Not Resolved]
  - Infection [Not Recovered/Not Resolved]
  - Transient ischaemic attack [Not Recovered/Not Resolved]
  - Superinfection [Not Recovered/Not Resolved]
